FAERS Safety Report 10054658 (Version 1)
Quarter: 2014Q2

REPORT INFORMATION
  Report Type: Spontaneous
  Country: US (occurrence: US)
  Receive Date: 20140402
  Receipt Date: 20140402
  Transmission Date: 20141212
  Serious: No
  Sender: FDA-Public Use
  Company Number: US-AMGEN-USASP2014021067

PATIENT
  Age: 15 Year
  Sex: Female

DRUGS (2)
  1. ENBREL [Suspect]
     Indication: JUVENILE IDIOPATHIC ARTHRITIS
     Dosage: 25 MG, 2 TIMES/WK
     Route: 065
     Dates: start: 20030103
  2. METHOTREXATE                       /00113802/ [Concomitant]
     Dosage: 25 MG, QWK,TAKEN FOR A COUPLE OF YEARS
     Route: 048

REACTIONS (1)
  - Injection site pain [Not Recovered/Not Resolved]
